FAERS Safety Report 4548354-X (Version None)
Quarter: 2004Q4

REPORT INFORMATION
  Report Type: 
  Country: None (occurrence: None)
  Receive Date: 20041227
  Receipt Date: 20041130
  Transmission Date: 20050328
  Serious: No
  Sender: FDA-Public Use
  Company Number: 04P-163-0273323-00

PATIENT
  Age: 62 Year
  Sex: Female
  Weight: 65.7716 kg

DRUGS (12)
  1. HUMIRA [Suspect]
     Indication: RHEUMATOID ARTHRITIS
     Dosage: 40 MG, 1 IN 2 WK, SUBCUTANEOUS
     Route: 058
     Dates: start: 20040401, end: 20040721
  2. PREDNISONE [Concomitant]
  3. METHOTREXATE [Concomitant]
  4. FOLIC ACID [Concomitant]
  5. VERAPAMIL HYDROCHLORIDE [Concomitant]
  6. RALOXIFENE HCL [Concomitant]
  7. ZOCOR [Concomitant]
  8. CETIRIZINE HCL [Concomitant]
  9. LANSOPRAZOLE [Concomitant]
  10. ZOLPIDEM TARTRATE [Concomitant]
  11. ALPRAZOLAM [Concomitant]
  12. ASCORBIC ACID [Concomitant]

REACTIONS (3)
  - HAEMATURIA [None]
  - HAIR TEXTURE ABNORMAL [None]
  - SKIN CANCER [None]
